FAERS Safety Report 8539496-2 (Version None)
Quarter: 2012Q3

REPORT INFORMATION
  Report Type: 
  Country: None (occurrence: None)
  Receive Date: 20120716
  Receipt Date: 20120703
  Transmission Date: 20120928
  Serious: Yes (Other)
  Sender: FDA-Public Use
  Company Number: ABR_OO535_2012

PATIENT
  Age: 16 Year
  Sex: Female
  Weight: 44 kg

DRUGS (3)
  1. MICRYYNON - ETHINYLESTRADIOL [Concomitant]
  2. ETHINYL ESTRADIOL AND LEVONORGESTREL [Concomitant]
  3. ERYTHROMYCIN ETHLSUCCINATE [Suspect]
     Indication: PRODUCT USED FOR UNKNOWN INDICATION
     Dosage: DF
     Dates: start: 20120511, end: 20120518

REACTIONS (3)
  - VOMITING [None]
  - CHEST PAIN [None]
  - NAUSEA [None]
